FAERS Safety Report 9219370 (Version 1)
Quarter: 2013Q2

REPORT INFORMATION
  Report Type: Spontaneous
  Country: US (occurrence: US)
  Receive Date: 20130409
  Receipt Date: 20130409
  Transmission Date: 20140414
  Serious: Yes (Hospitalization)
  Sender: FDA-Public Use
  Company Number: US-ELI_LILLY_AND_COMPANY-US201304000572

PATIENT
  Age: 89 Year
  Sex: Female

DRUGS (10)
  1. HUMALOG LISPRO [Suspect]
     Indication: DIABETES MELLITUS
     Dosage: 4 U, BID
  2. LANTUS [Concomitant]
  3. DETROL LA [Concomitant]
  4. METOPROLOL [Concomitant]
  5. CELEBREX [Concomitant]
  6. GABAPENTIN [Concomitant]
  7. LOVASTATIN [Concomitant]
  8. ZANTAC [Concomitant]
  9. CALTRATE                           /00944201/ [Concomitant]
  10. VITAMIN D [Concomitant]

REACTIONS (2)
  - Femur fracture [Unknown]
  - Injection site bruising [Not Recovered/Not Resolved]
